FAERS Safety Report 9992735 (Version 4)
Quarter: 2017Q1

REPORT INFORMATION
  Report Type: Spontaneous
  Country: US (occurrence: US)
  Receive Date: 20140310
  Receipt Date: 20170228
  Transmission Date: 20170429
  Serious: No
  Sender: FDA-Public Use
  Company Number: US-PFIZER INC-2014065461

PATIENT
  Age: 67 Year
  Sex: Female

DRUGS (2)
  1. ANCEF [Suspect]
     Active Substance: CEFAZOLIN SODIUM
     Dosage: UNK
  2. LIPITOR [Suspect]
     Active Substance: ATORVASTATIN CALCIUM
     Indication: HYPERLIPIDAEMIA
     Dosage: UNK

REACTIONS (2)
  - Rash [Unknown]
  - Drug hypersensitivity [Unknown]

NARRATIVE: CASE EVENT DATE: 20140617
